FAERS Safety Report 5957268-X (Version None)
Quarter: 2008Q4

REPORT INFORMATION
  Report Type: 
  Country: None (occurrence: None)
  Receive Date: 20081118
  Receipt Date: 20081111
  Transmission Date: 20090506
  Serious: No
  Sender: FDA-Public Use
  Company Number: US-B.I. PHARMACEUTICALS,INC./RIDGEFIELD-2008-BP-17175BP

PATIENT
  Sex: Male

DRUGS (7)
  1. SPIRIVA [Suspect]
     Indication: EMPHYSEMA
     Dosage: 18MCG
     Route: 055
     Dates: start: 20040101
  2. ALBUTEROL [Concomitant]
     Indication: EMPHYSEMA
  3. VERAPAMIL [Concomitant]
     Indication: CARDIAC DISORDER
  4. LIPITOR [Concomitant]
     Indication: BLOOD CHOLESTEROL INCREASED
  5. LISINOPRIL [Concomitant]
     Indication: CARDIAC DISORDER
  6. WARFARIN SODIUM [Concomitant]
     Indication: HEART RATE IRREGULAR
  7. TRAMADOL HCL [Concomitant]
     Indication: ARTHRITIS

REACTIONS (1)
  - DRUG EFFECT DECREASED [None]
